FAERS Safety Report 26083112 (Version 1)
Quarter: 2025Q4

REPORT INFORMATION
  Report Type: Spontaneous
  Country: US (occurrence: None)
  Receive Date: 20251124
  Receipt Date: 20251124
  Transmission Date: 20260117
  Serious: Yes (unspecified)
  Sender: FDA-CTU
  Company Number: None

PATIENT
  Age: 57 Year
  Sex: Female
  Weight: 78.75 kg

DRUGS (1)
  1. GLUCAGON-LIKE PEPTIDE 1 [Suspect]
     Active Substance: GLUCAGON-LIKE PEPTIDE 1
     Dates: start: 20250719, end: 20251119

REACTIONS (2)
  - Diverticulitis [None]
  - Muscle spasms [None]

NARRATIVE: CASE EVENT DATE: 20251123
